FAERS Safety Report 8203199-4 (Version None)
Quarter: 2012Q1

REPORT INFORMATION
  Report Type: 
  Country: None (occurrence: None)
  Receive Date: 20120312
  Receipt Date: 20120307
  Transmission Date: 20120608
  Serious: Yes (Hospitalization)
  Sender: FDA-Public Use
  Company Number: US-GILEAD-2012-0051142

PATIENT
  Age: 42 Year
  Sex: Female

DRUGS (4)
  1. OXYGEN [Concomitant]
  2. FLOLAN [Concomitant]
  3. LETAIRIS [Suspect]
     Indication: PRODUCT USED FOR UNKNOWN INDICATION
     Dosage: 5 MG, UNK
     Route: 048
     Dates: start: 20081208
  4. DIGOXIN [Suspect]

REACTIONS (2)
  - MULTIPLE SCLEROSIS RELAPSE [None]
  - INCOHERENT [None]
